FAERS Safety Report 19112399 (Version 3)
Quarter: 2023Q4

REPORT INFORMATION
  Report Type: Spontaneous
  Country: US (occurrence: US)
  Receive Date: 20210409
  Receipt Date: 20231222
  Transmission Date: 20240110
  Serious: Yes (Hospitalization)
  Sender: FDA-Public Use
  Company Number: US-LUPIN PHARMACEUTICALS INC.-2021-04383

PATIENT
  Age: 4 Month
  Sex: Male

DRUGS (1)
  1. TESTOSTERONE [Suspect]
     Active Substance: TESTOSTERONE
     Indication: Product used for unknown indication
     Dosage: UNK, THE BOY^S GRANDFATHER USED TESTOSTERONE TRANSDERMAL GEL DAILY
     Route: 062

REACTIONS (2)
  - Precocious puberty [Recovering/Resolving]
  - Accidental exposure to product by child [Unknown]
